FAERS Safety Report 25032752 (Version 1)
Quarter: 2025Q1

REPORT INFORMATION
  Report Type: Spontaneous
  Country: BR (occurrence: BR)
  Receive Date: 20250303
  Receipt Date: 20250303
  Transmission Date: 20250409
  Serious: Yes (Other)
  Sender: BIOMARIN
  Company Number: BR-BIOMARINAP-BR-2025-164235

PATIENT

DRUGS (3)
  1. VIMIZIM [Suspect]
     Active Substance: ELOSULFASE ALFA
     Indication: Product used for unknown indication
     Route: 042
     Dates: start: 202409
  2. VIMIZIM [Suspect]
     Active Substance: ELOSULFASE ALFA
     Route: 042
     Dates: start: 20240912
  3. VIMIZIM [Suspect]
     Active Substance: ELOSULFASE ALFA
     Route: 042

REACTIONS (11)
  - Hypoxia [Not Recovered/Not Resolved]
  - Syncope [Not Recovered/Not Resolved]
  - Salivary hypersecretion [Not Recovered/Not Resolved]
  - Transaminases increased [Not Recovered/Not Resolved]
  - Generalised oedema [Unknown]
  - Respiratory fatigue [Not Recovered/Not Resolved]
  - Sleep apnoea syndrome [Unknown]
  - Aortic valve incompetence [Unknown]
  - Heart rate increased [Unknown]
  - Vomiting [Unknown]
  - Abdominal pain [Unknown]

NARRATIVE: CASE EVENT DATE: 20240101
